FAERS Safety Report 9802486 (Version 1)
Quarter: 2014Q1

REPORT INFORMATION
  Report Type: Spontaneous
  Country: AR (occurrence: AR)
  Receive Date: 20140107
  Receipt Date: 20140107
  Transmission Date: 20141002
  Serious: Yes (Hospitalization)
  Sender: FDA-Public Use
  Company Number: AR-009507513-1401ARG001164

PATIENT
  Age: 54 Year
  Sex: Male

DRUGS (2)
  1. VICTRELIS [Suspect]
     Indication: HEPATITIS C
     Dosage: QD
     Route: 048
     Dates: start: 20130924, end: 20131201
  2. VICTRELIS [Suspect]
     Dosage: QD
     Route: 048
     Dates: start: 20131203

REACTIONS (1)
  - Gastroenteritis [Recovered/Resolved]
